FAERS Safety Report 9238528 (Version 4)
Quarter: 2013Q2

REPORT INFORMATION
  Report Type: Report from Study
  Country: CA (occurrence: CA)
  Receive Date: 20130418
  Receipt Date: 20130607
  Transmission Date: 20140414
  Serious: Yes (Other)
  Sender: FDA-Public Use
  Company Number: CA-JNJFOC-20130406108

PATIENT
  Age: 59 Year
  Sex: Female

DRUGS (1)
  1. REMICADE [Suspect]
     Indication: RHEUMATOID ARTHRITIS
     Route: 042

REACTIONS (5)
  - Accident [Unknown]
  - Abdominal discomfort [Unknown]
  - Discomfort [Not Recovered/Not Resolved]
  - Laceration [Unknown]
  - Contusion [Unknown]
